FAERS Safety Report 5834465-5 (Version None)
Quarter: 2008Q3

REPORT INFORMATION
  Report Type: 
  Country: None (occurrence: None)
  Receive Date: 20080805
  Receipt Date: 20080801
  Transmission Date: 20090109
  Serious: Yes (Death, Other)
  Sender: FDA-Public Use
  Company Number: IN-BOEHRINGER INGELHEIM GMBH, GERMANY-2008-DE-01219GD

PATIENT

DRUGS (7)
  1. NEVIRAPINE [Suspect]
     Indication: HUMAN IMMUNODEFICIENCY VIRUS TRANSMISSION
     Route: 064
  2. NEVIRAPINE [Suspect]
     Indication: PROPHYLAXIS
     Dosage: 2 MG/KG
     Route: 048
  3. NEVIRAPINE [Suspect]
     Route: 048
  4. NEVIRAPINE NON-BI [Suspect]
     Indication: HUMAN IMMUNODEFICIENCY VIRUS TRANSMISSION
     Route: 064
  5. NEVIRAPINE NON-BI [Suspect]
     Indication: PROPHYLAXIS
     Dosage: 2 MG/KG
     Route: 048
  6. NEVIRAPINE NON-BI [Suspect]
     Route: 048
  7. MULTI-VITAMINS [Concomitant]

REACTIONS (12)
  - CONGENITAL ANOMALY [None]
  - DEATH [None]
  - DRUG RESISTANCE [None]
  - GASTROINTESTINAL DISORDER [None]
  - GROWTH RETARDATION [None]
  - HIV INFECTION [None]
  - INFECTION [None]
  - MALNUTRITION [None]
  - NEONATAL DISORDER [None]
  - NEUTROPENIA [None]
  - RASH [None]
  - RESPIRATORY DISORDER [None]
